FAERS Safety Report 13658578 (Version 1)
Quarter: 2017Q2

REPORT INFORMATION
  Report Type: Spontaneous
  Country: US (occurrence: US)
  Receive Date: 20170615
  Receipt Date: 20170615
  Transmission Date: 20170830
  Serious: Yes (Other)
  Sender: FDA-Public Use
  Company Number: None

PATIENT
  Age: 28 Year
  Sex: Female
  Weight: 49.5 kg

DRUGS (4)
  1. ZYRTEC [Concomitant]
     Active Substance: CETIRIZINE HYDROCHLORIDE
  2. PREDNISONE 10MG [Suspect]
     Active Substance: PREDNISONE
     Indication: COLITIS ULCERATIVE
     Dates: start: 20170317, end: 20170421
  3. APRISO [Concomitant]
     Active Substance: MESALAMINE
  4. MULTIVITAMIN [Concomitant]
     Active Substance: VITAMINS

REACTIONS (6)
  - Insomnia [None]
  - Anxiety [None]
  - Depression [None]
  - Panic reaction [None]
  - Colitis ulcerative [None]
  - Withdrawal syndrome [None]

NARRATIVE: CASE EVENT DATE: 20170417
